FAERS Safety Report 6636281-3 (Version None)
Quarter: 2010Q1

REPORT INFORMATION
  Report Type: 
  Country: None (occurrence: None)
  Receive Date: 20100311
  Receipt Date: 20100304
  Transmission Date: 20100710
  Serious: Yes (Hospitalization)
  Sender: FDA-Public Use
  Company Number: CIP10000443

PATIENT
  Age: 53 Year
  Sex: Female

DRUGS (2)
  1. ASACOL [Suspect]
     Indication: CROHN'S DISEASE
     Dosage: 4800MG DAILY, ORAL
     Route: 048
  2. POTASSIUM (POTASSIUM) [Concomitant]

REACTIONS (4)
  - BLOOD POTASSIUM DECREASED [None]
  - CONDITION AGGRAVATED [None]
  - CROHN'S DISEASE [None]
  - GASTROINTESTINAL INFECTION [None]
